FAERS Safety Report 11872011 (Version 1)
Quarter: 2015Q4

REPORT INFORMATION
  Report Type: Spontaneous
  Country: IT (occurrence: IT)
  Receive Date: 20151228
  Receipt Date: 20151228
  Transmission Date: 20160305
  Serious: Yes (Death, Hospitalization, Other)
  Sender: FDA-Public Use
  Company Number: PHHY2015IT169552

PATIENT
  Age: 33 Year
  Sex: Male

DRUGS (4)
  1. ZOLEDRONIC ACID [Suspect]
     Active Substance: ZOLEDRONIC ACID
     Indication: RENAL CELL CARCINOMA STAGE IV
     Dosage: 4 MG, QMO (CYCLIC, Q28)
     Route: 042
     Dates: start: 201403
  2. SUTENT [Suspect]
     Active Substance: SUNITINIB MALATE
     Indication: RENAL CELL CARCINOMA STAGE IV
     Dosage: 50 MG, QD  (DAILY SCHEDULE 4 IS TO 2)
     Route: 048
     Dates: start: 201403
  3. SUTENT [Suspect]
     Active Substance: SUNITINIB MALATE
     Dosage: 75 MG, QD
     Route: 048
     Dates: start: 201407
  4. HEPARIN [Concomitant]
     Active Substance: HEPARIN SODIUM
     Indication: PRODUCT USED FOR UNKNOWN INDICATION
     Route: 065

REACTIONS (19)
  - Renal cell carcinoma [Fatal]
  - Cough [Unknown]
  - Product use issue [Unknown]
  - Metastases to bone [Unknown]
  - Dyspepsia [Unknown]
  - Osteolysis [Unknown]
  - Pulmonary embolism [Unknown]
  - Asthenia [Unknown]
  - Stomatitis [Unknown]
  - Deep vein thrombosis [Unknown]
  - Bone lesion [Unknown]
  - Bone pain [Unknown]
  - Nausea [Unknown]
  - Malignant neoplasm progression [Fatal]
  - Pathological fracture [Unknown]
  - Throat tightness [Unknown]
  - Metastases to central nervous system [Unknown]
  - Hypothyroidism [Unknown]
  - Drug interaction [Unknown]
